FAERS Safety Report 9490238 (Version 2)
Quarter: 2013Q4

REPORT INFORMATION
  Report Type: Spontaneous
  Country: US (occurrence: US)
  Receive Date: 20130830
  Receipt Date: 20131001
  Transmission Date: 20140711
  Serious: No
  Sender: FDA-Public Use
  Company Number: US-BIOGENIDEC-2013BI079172

PATIENT
  Age: 29 Year
  Sex: Female
  Weight: 163 kg

DRUGS (7)
  1. TYSABRI [Suspect]
     Indication: CROHN^S DISEASE
     Route: 042
  2. TYSABRI [Suspect]
     Route: 042
  3. TYSABRI [Suspect]
     Indication: CROHN^S DISEASE
     Route: 042
     Dates: start: 20130603, end: 20130729
  4. TYSABRI [Suspect]
     Route: 042
     Dates: start: 20130603, end: 20130729
  5. REMICAIDE [Concomitant]
     Indication: PRODUCT USED FOR UNKNOWN INDICATION
  6. HUMERA [Concomitant]
     Indication: PRODUCT USED FOR UNKNOWN INDICATION
  7. A2A (NOS) [Concomitant]
     Indication: PRODUCT USED FOR UNKNOWN INDICATION

REACTIONS (6)
  - Diarrhoea haemorrhagic [Unknown]
  - Pain [Unknown]
  - Drug resistance [Unknown]
  - Immune thrombocytopenic purpura [Unknown]
  - Drug ineffective [Unknown]
  - Dyspnoea [Unknown]
